FAERS Safety Report 8347672 (Version 2)
Quarter: 2014Q1

REPORT INFORMATION
  Report Type: Spontaneous
  Country: US (occurrence: US)
  Receive Date: 20120120
  Receipt Date: 20140203
  Transmission Date: 20141002
  Serious: No
  Sender: FDA-Public Use
  Company Number: US-ALLERGAN-1115116US

PATIENT
  Age: 63 Year
  Sex: Female

DRUGS (6)
  1. RESTASIS [Suspect]
     Indication: DRY EYE
     Dosage: 2 GTT, QD
     Route: 047
  2. RESTASIS [Suspect]
     Dosage: 2 GTT, BID
     Route: 047
  3. NATURAL EYE DROPS [Concomitant]
     Indication: PRODUCT USED FOR UNKNOWN INDICATION
     Route: 047
  4. SYSTANE [Concomitant]
     Indication: DRY EYE
  5. REFRESH OPTIVE [Concomitant]
     Indication: DRY EYE
  6. VALTREX [Concomitant]
     Indication: HERPES VIRUS INFECTION
     Dosage: UNK, PRN

REACTIONS (11)
  - Inappropriate schedule of drug administration [Unknown]
  - Migraine [Unknown]
  - Eyelid pain [Unknown]
  - Incorrect dose administered [Unknown]
  - Migraine [Unknown]
  - Instillation site pain [Unknown]
  - Drug ineffective [Unknown]
  - Foreign body sensation in eyes [Unknown]
  - Eye irritation [Unknown]
  - Incorrect product storage [Unknown]
  - Skin hyperpigmentation [Unknown]
